FAERS Safety Report 6160479-4 (Version None)
Quarter: 2009Q2

REPORT INFORMATION
  Report Type: 
  Country: None (occurrence: None)
  Receive Date: 20090420
  Receipt Date: 20090413
  Transmission Date: 20091009
  Serious: Yes (Hospitalization)
  Sender: FDA-Public Use
  Company Number: JP-ASTRAZENECA-2009AP02117

PATIENT
  Age: 69 Year
  Sex: Male

DRUGS (1)
  1. NOLVADEX [Suspect]
     Indication: BREAST CANCER MALE
     Route: 048
     Dates: start: 20060101

REACTIONS (1)
  - PROSTATE CANCER [None]
